FAERS Safety Report 24742699 (Version 2)
Quarter: 2025Q4

REPORT INFORMATION
  Report Type: Report from Study
  Country: CN (occurrence: CN)
  Receive Date: 20241217
  Receipt Date: 20251211
  Transmission Date: 20260118
  Serious: Yes (Hospitalization, Other)
  Sender: PFIZER
  Company Number: CN-TAKEDA-2022TUS026204

PATIENT
  Age: 40 Year
  Sex: Female

DRUGS (44)
  1. BRENTUXIMAB VEDOTIN [Suspect]
     Active Substance: BRENTUXIMAB VEDOTIN
     Indication: Angiocentric lymphoma
     Dosage: 100 MILLIGRAM, Q3WEEKS
     Route: 041
     Dates: start: 20220209
  2. ASPIRIN [Suspect]
     Active Substance: ASPIRIN
     Dosage: UNK
     Route: 065
  3. BIAPENEM [Suspect]
     Active Substance: BIAPENEM
     Dosage: UNK
     Route: 065
  4. HERBALS [Concomitant]
     Active Substance: HERBALS
     Indication: Anaemia
     Dosage: 15 MILLILITER, TID
     Route: 048
     Dates: start: 20220207
  5. ENTECAVIR [Concomitant]
     Active Substance: ENTECAVIR
     Indication: Hepatitis B
     Dosage: 0.5 MILLIGRAM, QD
     Route: 048
     Dates: start: 20220211
  6. YIN ZHI HUANG [Concomitant]
     Indication: Liver injury
     Dosage: 10 MILLILITER, TID
     Route: 048
     Dates: start: 20220223
  7. SODIUM BICARBONATE [Concomitant]
     Active Substance: SODIUM BICARBONATE
     Indication: Mouth ulceration
     Dosage: 250 MILLILITER
     Route: 065
     Dates: start: 20220209, end: 20220215
  8. SODIUM BICARBONATE [Concomitant]
     Active Substance: SODIUM BICARBONATE
     Dosage: 40 MILLILITER, QD
     Route: 042
     Dates: start: 20220209, end: 20220212
  9. OPRELVEKIN [Concomitant]
     Active Substance: OPRELVEKIN
     Indication: Mouth ulceration
     Dosage: 3 MILLIGRAM
     Route: 065
     Dates: start: 20220209, end: 20220225
  10. POTASSIUM CHLORIDE [Concomitant]
     Active Substance: POTASSIUM CHLORIDE
     Indication: Alkalosis
     Dosage: 10 MILLILITER, QD
     Route: 042
     Dates: start: 20220209, end: 20220212
  11. POTASSIUM CHLORIDE [Concomitant]
     Active Substance: POTASSIUM CHLORIDE
     Indication: Prophylaxis against dehydration
     Dosage: 5 MILLILITER, QD
     Route: 042
     Dates: start: 20220219, end: 20220219
  12. DEXTROSE [Concomitant]
     Active Substance: DEXTROSE MONOHYDRATE
     Indication: Alkalosis
     Dosage: 500 MILLILITER, QD
     Route: 042
     Dates: start: 20220209, end: 20220212
  13. LEUCOVORIN CALCIUM [Concomitant]
     Active Substance: LEUCOVORIN CALCIUM
     Indication: Prophylaxis
     Dosage: 1000 MILLIGRAM, QD
     Route: 042
     Dates: start: 20220209, end: 20220209
  14. ALUMINUM PHOSPHATE [Concomitant]
     Active Substance: ALUMINUM PHOSPHATE
     Indication: Prophylaxis
     Dosage: 20 GRAM, BID
     Route: 048
     Dates: start: 20220210, end: 20220215
  15. APREPITANT ACCORD [Concomitant]
     Indication: Prophylaxis
     Dosage: UNK UNK, QD
     Route: 048
     Dates: start: 20220210, end: 20220214
  16. XI PA YI GU YIN [Concomitant]
     Indication: Prophylaxis
     Dosage: 5 MILLILITER, QID
     Route: 048
     Dates: start: 20220211, end: 20220225
  17. XI PA YI GU YIN [Concomitant]
     Dosage: 5 MILLILITER, TID
     Dates: start: 20220222, end: 20220222
  18. CEFUROXIME AXETIL [Concomitant]
     Active Substance: CEFUROXIME AXETIL
     Indication: Prophylaxis
     Dosage: 0.25 GRAM, BID
     Route: 048
     Dates: start: 20220211, end: 20220215
  19. DEXAMETHASONE SODIUM PHOSPHATE [Concomitant]
     Active Substance: DEXAMETHASONE SODIUM PHOSPHATE
     Indication: Lymphoma
     Dosage: 20 MILLIGRAM, BID
     Route: 042
     Dates: start: 20220211, end: 20220213
  20. DEXAMETHASONE SODIUM PHOSPHATE [Concomitant]
     Active Substance: DEXAMETHASONE SODIUM PHOSPHATE
     Indication: Prophylaxis
     Dosage: 5 MILLIGRAM, QD
     Route: 042
     Dates: start: 20220219, end: 20220219
  21. DEXAMETHASONE SODIUM PHOSPHATE [Concomitant]
     Active Substance: DEXAMETHASONE SODIUM PHOSPHATE
     Dosage: 5 MILLIGRAM, QD
     Route: 042
     Dates: start: 20220221, end: 20220221
  22. IFOSFAMIDE [Concomitant]
     Active Substance: IFOSFAMIDE
     Indication: Lymphoma
     Dosage: 2 GRAM, QD
     Route: 042
     Dates: start: 20220211, end: 20220213
  23. MESNA [Concomitant]
     Active Substance: MESNA
     Indication: Urinary tract disorder prophylaxis
     Dosage: 0.4 GRAM, TID
     Route: 042
     Dates: start: 20220211, end: 20220214
  24. ETOPOSIDE [Concomitant]
     Active Substance: ETOPOSIDE
     Indication: Lymphoma
     Dosage: 0.13 GRAM, QD
     Route: 042
     Dates: start: 20220211, end: 20220213
  25. METHOTREXATE [Concomitant]
     Active Substance: METHOTREXATE
     Indication: Lymphoma
     Dosage: 2.7 GRAM, QD
     Route: 042
     Dates: start: 20220210, end: 20220210
  26. DIPHENHYDRAMINE HYDROCHLORIDE [Concomitant]
     Active Substance: DIPHENHYDRAMINE HYDROCHLORIDE
     Indication: Allergy prophylaxis
     Dosage: 40 MILLIGRAM, QD
     Route: 030
     Dates: start: 20220213, end: 20220213
  27. DIPHENHYDRAMINE HYDROCHLORIDE [Concomitant]
     Active Substance: DIPHENHYDRAMINE HYDROCHLORIDE
     Dosage: 20 MILLIGRAM, QD
     Route: 030
     Dates: start: 20220217, end: 20220222
  28. DIPHENHYDRAMINE HYDROCHLORIDE [Concomitant]
     Active Substance: DIPHENHYDRAMINE HYDROCHLORIDE
     Dosage: UNK UNK, QD
     Route: 030
     Dates: start: 20220219, end: 20220219
  29. BACILLUS LICHENFORMIS [Concomitant]
     Indication: Constipation prophylaxis
     Dosage: 1 GRAM, TID
     Route: 048
     Dates: start: 20220222, end: 20220222
  30. METOCLOPRAMIDE DIHYDROCHLORIDE [Concomitant]
     Active Substance: METOCLOPRAMIDE DIHYDROCHLORIDE
     Indication: Prophylaxis of nausea and vomiting
     Dosage: 10 MILLIGRAM, QD
     Route: 042
     Dates: start: 20220219, end: 20220219
  31. SODIUM ACETATE [Concomitant]
     Active Substance: SODIUM ACETATE
     Indication: Prophylaxis against dehydration
     Dosage: 500 MILLILITER, QD
     Route: 042
     Dates: start: 20220219, end: 20220219
  32. PEGASPARGASE [Concomitant]
     Active Substance: PEGASPARGASE
     Indication: Lymphoma
     Dosage: UNK UNK, QD
     Route: 042
     Dates: start: 20220213, end: 20220213
  33. HERBALS\DIAMMONIUM GLYCYRRHIZINATE [Concomitant]
     Active Substance: HERBALS\DIAMMONIUM GLYCYRRHIZINATE
     Indication: Liver injury
     Dosage: 150 MILLIGRAM, TID
     Route: 048
     Dates: start: 20220214, end: 20220215
  34. CALCIUM CARBONATE\CHOLECALCIFEROL [Concomitant]
     Active Substance: CALCIUM CARBONATE\CHOLECALCIFEROL
     Indication: Osteoporosis prophylaxis
     Dosage: 0.6 GRAM, TID
     Route: 048
     Dates: start: 20220214, end: 20220225
  35. COMPOUND SODIUM CHLORIDE [CALCIUM CHLORIDE;POTASSIUM CHLORIDE;SODIUM C [Concomitant]
     Indication: Prophylaxis against dehydration
     Dosage: 500 MILLILITER, QD
     Route: 042
     Dates: start: 20220215, end: 20220215
  36. CARBOHYDRATES\ELECTROLYTES NOS [Concomitant]
     Active Substance: CARBOHYDRATES\ELECTROLYTES NOS
     Indication: Prophylaxis against dehydration
     Dosage: 500 MILLILITER, QD
     Route: 042
     Dates: start: 20220215, end: 20220218
  37. FU FANG KU SHEN [SMILAX SPP. TUBER;SOPHORA FLAVESCENS ROOT] [Concomitant]
     Indication: Chemotherapy side effect prophylaxis
     Dosage: 20 MILLILITER, QD
     Route: 042
     Dates: start: 20220215, end: 20220220
  38. COMPOUND AMINO ACIDS INJECTION (18AA-IX) [Concomitant]
     Indication: Nutritional supplementation
     Dosage: 200 MILLILITER, QD
     Route: 042
     Dates: start: 20220216, end: 20220220
  39. AIDIN [Concomitant]
     Indication: Chemotherapy side effect prophylaxis
     Dosage: 100 MILLILITER, QD
     Route: 042
     Dates: start: 20220216, end: 20220225
  40. SODIUM ACETATE RINGER [Concomitant]
     Indication: Prophylaxis against dehydration
     Dosage: 500 MILLILITER, QD
     Route: 042
     Dates: start: 20220216, end: 20220218
  41. ONDANSETRON HYDROCHLORIDE [Concomitant]
     Active Substance: ONDANSETRON HYDROCHLORIDE
     Indication: Prophylaxis of nausea and vomiting
     Dosage: 8 MILLIGRAM, TID
     Route: 048
     Dates: start: 20220216, end: 20220219
  42. TRAMADOL HYDROCHLORIDE [Concomitant]
     Active Substance: TRAMADOL HYDROCHLORIDE
     Indication: Cancer pain
     Dosage: 100 MILLIGRAM, QD
     Route: 030
     Dates: start: 20220217, end: 20220217
  43. ETHAMSYLATE [Concomitant]
     Active Substance: ETHAMSYLATE
     Indication: Haemorrhage prophylaxis
     Dosage: 1 GRAM, QD
     Route: 042
     Dates: start: 20220219, end: 20220225
  44. VITAMIN C [Concomitant]
     Active Substance: ASCORBIC ACID
     Indication: Haemorrhage prophylaxis
     Dosage: 1 GRAM, QD
     Route: 042
     Dates: start: 20220219, end: 20220225

REACTIONS (20)
  - Hypoalbuminaemia [Recovered/Resolved]
  - Agranulocytosis [Recovered/Resolved]
  - Immune thrombocytopenia [Recovered/Resolved]
  - Lymphocyte count decreased [Unknown]
  - Blood bilirubin increased [Recovered/Resolved]
  - Platelet count decreased [Recovered/Resolved]
  - White blood cell count decreased [Recovered/Resolved]
  - Neutrophil count decreased [Recovered/Resolved]
  - Alanine aminotransferase increased [Recovered/Resolved]
  - Nausea [Recovered/Resolved]
  - Constipation [Recovered/Resolved]
  - Anaemia [Unknown]
  - Blood fibrinogen decreased [Recovered/Resolved]
  - Hypoglycaemia [Recovered/Resolved]
  - Vision blurred [Recovered/Resolved]
  - Anal infection [Recovered/Resolved]
  - Periorbital oedema [Recovered/Resolved]
  - Pyrexia [Recovered/Resolved]
  - Upper respiratory tract infection [Recovered/Resolved]
  - Off label use [Unknown]

NARRATIVE: CASE EVENT DATE: 20220209
